FAERS Safety Report 5647019-0 (Version None)
Quarter: 2008Q1

REPORT INFORMATION
  Report Type: 
  Country: None (occurrence: None)
  Receive Date: 20080303
  Receipt Date: 20080228
  Transmission Date: 20080703
  Serious: Yes (Other)
  Sender: FDA-Public Use
  Company Number: B0510197A

PATIENT
  Age: 19 Year
  Sex: Male

DRUGS (4)
  1. KEPPRA [Suspect]
     Indication: EPILEPSY
     Dosage: 4000MG PER DAY
     Route: 048
  2. VALPROATE SODIUM [Suspect]
     Indication: EPILEPSY
     Dosage: 1800MG PER DAY
     Route: 048
  3. TOPIRAMATE [Suspect]
     Indication: EPILEPSY
     Route: 048
  4. LAMOTRIGINE [Suspect]
     Indication: EPILEPSY
     Dosage: 250MG PER DAY
     Route: 048

REACTIONS (1)
  - THROMBOCYTOPENIC PURPURA [None]
